FAERS Safety Report 9055638 (Version 3)
Quarter: 2013Q1

REPORT INFORMATION
  Report Type: Spontaneous
  Country: US (occurrence: US)
  Receive Date: 20130206
  Receipt Date: 20130211
  Transmission Date: 20140127
  Serious: Yes (Other)
  Sender: FDA-Public Use
  Company Number: US-PFIZER INC-2013045224

PATIENT
  Age: 85 Year
  Sex: Female
  Weight: 47.62 kg

DRUGS (3)
  1. LIPITOR [Suspect]
     Indication: TRANSIENT ISCHAEMIC ATTACK
     Dosage: UNK
     Dates: start: 20111213
  2. PROTONIX [Suspect]
     Indication: TRANSIENT ISCHAEMIC ATTACK
     Dosage: UNK
  3. PLAVIX [Suspect]
     Indication: TRANSIENT ISCHAEMIC ATTACK
     Dosage: UNK

REACTIONS (7)
  - Vaginal haemorrhage [Unknown]
  - Vaginal prolapse [Unknown]
  - Haemorrhage [Unknown]
  - Amnesia [Unknown]
  - Vulvovaginal pruritus [Unknown]
  - Haemorrhoids [Unknown]
  - Pruritus [Unknown]
